FAERS Safety Report 9140175 (Version 1)
Quarter: 2013Q1

REPORT INFORMATION
  Report Type: Spontaneous
  Country: FR (occurrence: FR)
  Receive Date: 20130305
  Receipt Date: 20130305
  Transmission Date: 20140127
  Serious: Yes (Other)
  Sender: FDA-Public Use
  Company Number: FR-CELGENEUS-056-21880-13023593

PATIENT
  Age: 79 Year
  Sex: Male

DRUGS (2)
  1. REVLIMID [Suspect]
     Indication: PLASMA CELL MYELOMA
     Dosage: 10 MILLIGRAM
     Route: 048
     Dates: start: 200903, end: 201105
  2. REVLIMID [Suspect]
     Dosage: 7 MILLIGRAM
     Route: 048
     Dates: start: 201211

REACTIONS (1)
  - Hyperthyroidism [Not Recovered/Not Resolved]
